FAERS Safety Report 6193204-1 (Version None)
Quarter: 2009Q2

REPORT INFORMATION
  Report Type: 
  Country: None (occurrence: None)
  Receive Date: 20090518
  Receipt Date: 20090508
  Transmission Date: 20091009
  Serious: Yes (Death)
  Sender: FDA-Public Use
  Company Number: A0776005A

PATIENT
  Age: 54 Year
  Sex: Male
  Weight: 136.8 kg

DRUGS (5)
  1. AVANDIA [Suspect]
     Dosage: 8MG PER DAY
     Route: 048
     Dates: start: 20050701, end: 20060305
  2. GLUCOPHAGE [Concomitant]
     Dates: end: 20060305
  3. ASPIRIN [Concomitant]
  4. COMBIVENT [Concomitant]
  5. ALBUTEROL [Concomitant]

REACTIONS (4)
  - CARDIO-RESPIRATORY ARREST [None]
  - HEART INJURY [None]
  - MYOCARDIAL INFARCTION [None]
  - SUDDEN CARDIAC DEATH [None]
